FAERS Safety Report 9983612 (Version 1)
Quarter: 2014Q1

REPORT INFORMATION
  Report Type: Spontaneous
  Country: US (occurrence: US)
  Receive Date: 20140307
  Receipt Date: 20140307
  Transmission Date: 20141002
  Serious: Yes (Other)
  Sender: FDA-Public Use
  Company Number: PHEH2014US004565

PATIENT
  Age: 49 Year
  Sex: Female

DRUGS (4)
  1. GILENYA [Suspect]
     Dosage: 0.5 MG, QD
     Route: 048
     Dates: start: 20130701, end: 20140228
  2. AMBIEN [Concomitant]
     Dosage: 10 MG, UNK
  3. OXYBUTIN [Concomitant]
  4. CYMBALTA [Concomitant]

REACTIONS (1)
  - Loss of consciousness [Recovered/Resolved]
